FAERS Safety Report 10350616 (Version 2)
Quarter: 2014Q3

REPORT INFORMATION
  Report Type: Spontaneous
  Country: US (occurrence: US)
  Receive Date: 20140730
  Receipt Date: 20140730
  Transmission Date: 20150326
  Serious: Yes (Other)
  Sender: FDA-Public Use
  Company Number: US-BRISTOL-MYERS SQUIBB COMPANY-20627014

PATIENT
  Age: 68 Year
  Sex: Male

DRUGS (7)
  1. FARXIGA [Suspect]
     Active Substance: DAPAGLIFLOZIN PROPANEDIOL
     Indication: TYPE 2 DIABETES MELLITUS
     Route: 048
     Dates: start: 20140403, end: 20140405
  2. ZYLOPRIM [Concomitant]
     Active Substance: ALLOPURINOL
  3. GLUCOPHAGE [Concomitant]
     Active Substance: METFORMIN HYDROCHLORIDE
  4. DIGITEK [Concomitant]
     Active Substance: DIGOXIN
  5. AVODART [Concomitant]
     Active Substance: DUTASTERIDE
  6. LOPRIL [Concomitant]
     Active Substance: LISINOPRIL
  7. ZYRTEC [Concomitant]
     Active Substance: CETIRIZINE HYDROCHLORIDE

REACTIONS (1)
  - Hypersensitivity [Recovering/Resolving]

NARRATIVE: CASE EVENT DATE: 20140404
